FAERS Safety Report 8942764 (Version 1)
Quarter: 2012Q4

REPORT INFORMATION
  Report Type: 
  Country: US (occurrence: US)
  Receive Date: 20121204
  Receipt Date: 20121204
  Transmission Date: 20130627
  Serious: No
  Sender: FDA-Public Use
  Company Number: US-009507513-1212USA000457

PATIENT
  Age: 72 Year
  Sex: Male

DRUGS (4)
  1. NASONEX [Suspect]
     Indication: SINUS DISORDER
     Dosage: 2 DF, qam
     Route: 055
     Dates: start: 201211
  2. CRESTOR [Concomitant]
  3. PRADAXA [Concomitant]
  4. MAGNESIUM (UNSPECIFIED) [Concomitant]

REACTIONS (1)
  - Dyspepsia [Recovering/Resolving]
